FAERS Safety Report 8604307 (Version 3)
Quarter: 2012Q4

REPORT INFORMATION
  Report Type: 
  Country: DK (occurrence: DK)
  Receive Date: 20120608
  Receipt Date: 20120907
  Transmission Date: 20130627
  Serious: Yes (Other)
  Sender: FDA-Public Use
  Company Number: DK-BAYER-2012-056214

PATIENT
  Age: 69 Year
  Sex: Female

DRUGS (1)
  1. NEXAVAR [Suspect]
     Indication: HEPATIC NEOPLASM MALIGNANT
     Dosage: UNK

REACTIONS (4)
  - Hepatic cancer [None]
  - Osteonecrosis of jaw [None]
  - Dental leakage [None]
  - Loose tooth [None]
